FAERS Safety Report 16124991 (Version 4)
Quarter: 2019Q2

REPORT INFORMATION
  Report Type: Spontaneous
  Country: JP (occurrence: JP)
  Receive Date: 20190327
  Receipt Date: 20190516
  Transmission Date: 20190711
  Serious: Yes (Hospitalization, Other)
  Sender: FDA-Public Use
  Company Number: JP-BRISTOL-MYERS SQUIBB COMPANY-BMS-2019-012464

PATIENT
  Age: 66 Year
  Sex: Female
  Weight: 40.6 kg

DRUGS (10)
  1. SENNOSIDE A+B CALCIUM [Concomitant]
     Active Substance: SENNOSIDES A AND B
     Indication: CONSTIPATION
     Dosage: 12 MILLIGRAM, EVERYDAY
     Route: 048
     Dates: start: 20181206, end: 20181212
  2. MAGNESIUM OXIDE. [Concomitant]
     Active Substance: MAGNESIUM OXIDE
     Indication: CONSTIPATION
     Dosage: 3 DOSAGE FORM, Q8H
     Route: 048
     Dates: start: 20181212, end: 20181221
  3. IBUPROFEN. [Concomitant]
     Active Substance: IBUPROFEN
     Indication: PAIN
     Dosage: 2 DOSAGE FORM, EVERYDAY
     Route: 048
     Dates: start: 20181210, end: 20181212
  4. OPDIVO [Suspect]
     Active Substance: NIVOLUMAB
     Indication: NON-SMALL CELL LUNG CANCER RECURRENT
     Dosage: 240 MG
     Route: 041
     Dates: start: 20181207, end: 20181221
  5. ETIZOLAM EMEC [Concomitant]
     Active Substance: ETIZOLAM
     Indication: INSOMNIA
     Dosage: 0.5 MILLIGRAM, EVERYDAY
     Route: 048
     Dates: start: 20181212
  6. CODEINE PHOSPHATE [Concomitant]
     Active Substance: CODEINE PHOSPHATE
     Indication: COUGH
     Dosage: 2 GRAM, EVERYDAY
     Route: 048
     Dates: start: 20181212
  7. HOCHUEKKITO                        /07973001/ [Concomitant]
     Active Substance: HERBALS
     Indication: DECREASED APPETITE
     Dosage: 3 DOSAGE FORM, Q8H
     Route: 048
     Dates: start: 20181221, end: 20190104
  8. GASTEEL                            /00159501/ [Concomitant]
     Indication: FLATULENCE
     Dosage: 120 MILLIGRAM, Q8H
     Route: 048
     Dates: end: 20190104
  9. GASMOTIN [Concomitant]
     Active Substance: MOSAPRIDE CITRATE
     Indication: GASTRITIS
     Dosage: 15 MILLIGRAM, Q8H
     Route: 048
     Dates: end: 20190104
  10. CRESTOR [Concomitant]
     Active Substance: ROSUVASTATIN CALCIUM
     Indication: HYPERLIPIDAEMIA
     Dosage: 2.5 MILLIGRAM, EVERYDAY
     Route: 048
     Dates: end: 20190104

REACTIONS (4)
  - Gastric ulcer [Unknown]
  - Condition aggravated [Unknown]
  - Anaemia [Unknown]
  - Interstitial lung disease [Not Recovered/Not Resolved]

NARRATIVE: CASE EVENT DATE: 20190104
